FAERS Safety Report 6892575-8 (Version None)
Quarter: 2010Q3

REPORT INFORMATION
  Report Type: 
  Country: None (occurrence: None)
  Receive Date: 20100731
  Receipt Date: 20080717
  Transmission Date: 20110219
  Serious: No
  Sender: FDA-Public Use
  Company Number: US-PFIZER INC-2008059422

PATIENT
  Sex: Male
  Weight: 100 kg

DRUGS (5)
  1. NEURONTIN [Suspect]
     Indication: PAIN
  2. ACETAMINOPHEN W/ CODEINE [Concomitant]
  3. VALIUM [Concomitant]
  4. AMBIEN [Concomitant]
  5. LIDODERM [Concomitant]

REACTIONS (1)
  - DRUG INEFFECTIVE [None]
